FAERS Safety Report 17417972 (Version 1)
Quarter: 2020Q1

REPORT INFORMATION
  Report Type: Spontaneous
  Country: US (occurrence: US)
  Receive Date: 20200214
  Receipt Date: 20200214
  Transmission Date: 20200409
  Serious: Yes (Hospitalization)
  Sender: FDA-Public Use
  Company Number: US-ASTRAZENECA-2020SE21191

PATIENT
  Sex: Female

DRUGS (6)
  1. SYNAGIS [Suspect]
     Active Substance: PALIVIZUMAB
     Indication: OESOPHAGEAL ATRESIA
     Route: 030
     Dates: start: 20191226
  2. SYNAGIS [Suspect]
     Active Substance: PALIVIZUMAB
     Indication: ACQUIRED TRACHEO-OESOPHAGEAL FISTULA
     Route: 030
     Dates: start: 20200130
  3. SYNAGIS [Suspect]
     Active Substance: PALIVIZUMAB
     Indication: ACQUIRED TRACHEO-OESOPHAGEAL FISTULA
     Route: 030
     Dates: start: 20191226
  4. SYNAGIS [Suspect]
     Active Substance: PALIVIZUMAB
     Indication: OESOPHAGEAL ATRESIA
     Route: 030
     Dates: start: 20200130
  5. SYNAGIS [Suspect]
     Active Substance: PALIVIZUMAB
     Indication: OESOPHAGEAL ATRESIA
     Route: 030
     Dates: start: 20191218
  6. SYNAGIS [Suspect]
     Active Substance: PALIVIZUMAB
     Indication: ACQUIRED TRACHEO-OESOPHAGEAL FISTULA
     Route: 030
     Dates: start: 20191218

REACTIONS (4)
  - Respiratory syncytial virus infection [Unknown]
  - Product use in unapproved indication [Not Recovered/Not Resolved]
  - Inappropriate schedule of product administration [Unknown]
  - Off label use [Not Recovered/Not Resolved]
